FAERS Safety Report 5677445-5 (Version None)
Quarter: 2008Q1

REPORT INFORMATION
  Report Type: 
  Country: None (occurrence: None)
  Receive Date: 20080324
  Receipt Date: 20080314
  Transmission Date: 20080703
  Serious: Yes (Other)
  Sender: FDA-Public Use
  Company Number: JP-JNJFOC-20080303968

PATIENT
  Age: 82 Year
  Sex: Male

DRUGS (2)
  1. RISPERDAL [Suspect]
     Indication: DRUG USE FOR UNKNOWN INDICATION
     Route: 048
  2. ARICEPT [Concomitant]
     Route: 048

REACTIONS (3)
  - DYSPHAGIA [None]
  - PNEUMONIA ASPIRATION [None]
  - SALIVARY HYPERSECRETION [None]
